FAERS Safety Report 6453457-9 (Version None)
Quarter: 2009Q4

REPORT INFORMATION
  Report Type: 
  Country: None (occurrence: None)
  Receive Date: 20091124
  Receipt Date: 20091113
  Transmission Date: 20100525
  Serious: Yes (Hospitalization)
  Sender: FDA-Public Use
  Company Number: FR-JNJFOC-20091104339

PATIENT
  Sex: Male

DRUGS (5)
  1. PREZISTA [Suspect]
     Route: 048
  2. PREZISTA [Suspect]
     Indication: HIV INFECTION
     Route: 048
  3. NORVIR [Suspect]
     Route: 048
  4. NORVIR [Suspect]
     Indication: HIV INFECTION
     Route: 048
  5. KIVEXA [Suspect]
     Indication: HIV INFECTION

REACTIONS (4)
  - HYPERSENSITIVITY [None]
  - INFLUENZA [None]
  - RASH [None]
  - RENAL FAILURE ACUTE [None]
